FAERS Safety Report 9120203 (Version 2)
Quarter: 2013Q2

REPORT INFORMATION
  Report Type: Spontaneous
  Country: US (occurrence: US)
  Receive Date: 20130226
  Receipt Date: 20130411
  Transmission Date: 20140414
  Serious: Yes (Other)
  Sender: FDA-Public Use
  Company Number: US-PFIZER INC-2013067669

PATIENT
  Age: 78 Year
  Sex: Female

DRUGS (9)
  1. SUTENT [Suspect]
     Indication: PANCREATIC CARCINOMA
     Dosage: UNK
  2. SUTENT [Suspect]
     Indication: PANCREATIC CARCINOMA
     Dosage: 12.5 MG, WEEKLY
  3. SUTENT [Suspect]
     Dosage: 25 MG, WEEKLY
  4. SUTENT [Suspect]
     Dosage: 37.5 MG, UNK
  5. SUTENT [Suspect]
     Dosage: 12.5 MG, WEEKLY
  6. SUTENT [Suspect]
     Dosage: 25 MG, WEEKLY
  7. SUTENT [Suspect]
     Dosage: 37.5 MG, UNK
  8. SUTENT [Suspect]
     Dosage: 25 MG, DAILY
  9. SUTENT [Suspect]
     Dosage: 25 MG, UNK

REACTIONS (17)
  - Gastric ulcer [Unknown]
  - Gastrointestinal haemorrhage [Unknown]
  - Malaise [Unknown]
  - Confusional state [Unknown]
  - Disorientation [Unknown]
  - Diarrhoea [Unknown]
  - Thrombocytopenia [Unknown]
  - Leukopenia [Unknown]
  - Fatigue [Unknown]
  - Anaemia [Unknown]
  - Dysphagia [Unknown]
  - Hepatic enzyme abnormal [Unknown]
  - Pleural effusion [Unknown]
  - Haemoglobin decreased [Unknown]
  - Odynophagia [Unknown]
  - Disease progression [Unknown]
  - Pancreatic carcinoma [Unknown]
